FAERS Safety Report 9643759 (Version 2)
Quarter: 2013Q4

REPORT INFORMATION
  Report Type: Spontaneous
  Country: US (occurrence: US)
  Receive Date: 20131024
  Receipt Date: 20131024
  Transmission Date: 20140711
  Serious: Yes (Other)
  Sender: FDA-Public Use
  Company Number: US-TEVA-436225USA

PATIENT
  Sex: Female

DRUGS (18)
  1. DIAMOX [Suspect]
     Indication: MIGRAINE
     Dosage: 500 MG, FREQUENCY NOT PROVIDED
  2. DIAMOX [Suspect]
     Dosage: WENT UP AS HIGH AS 2000 MG TWICE DAILY
     Dates: end: 201306
  3. KEPPRA [Suspect]
     Dosage: 500 MG, FREQUENCY NOT PROVIDED
  4. KEPPRA [Suspect]
     Dosage: WENT UP AS HIGH AS 1000 MG TWICE DAILY
     Dates: end: 201306
  5. EFFEXOR-XR [Concomitant]
  6. ZITHROMAX [Concomitant]
  7. LYRICA [Concomitant]
  8. ADVIL [Concomitant]
     Indication: MIGRAINE
  9. TOPAMAX [Concomitant]
  10. IORICET [Concomitant]
  11. ATIVAN [Concomitant]
  12. ZITHROMAX [Concomitant]
  13. ALBUTEROL [Concomitant]
  14. ROBITUSSIN [Concomitant]
  15. PREDNISONE [Concomitant]
  16. EFFEXOR [Concomitant]
  17. IBUPROFEN [Concomitant]
  18. PROPANOL [Concomitant]

REACTIONS (11)
  - Drug hypersensitivity [Recovering/Resolving]
  - Diarrhoea [Recovering/Resolving]
  - Gastrointestinal mucosal exfoliation [Recovering/Resolving]
  - Aphagia [Recovering/Resolving]
  - Weight decreased [Recovering/Resolving]
  - Tooth disorder [Recovering/Resolving]
  - Somnolence [Recovering/Resolving]
  - Drug ineffective [Recovering/Resolving]
  - Off label use [Recovering/Resolving]
  - Overdose [Recovering/Resolving]
  - Drug administration error [Recovering/Resolving]
